FAERS Safety Report 23046095 (Version 1)
Quarter: 2023Q4

REPORT INFORMATION
  Report Type: Spontaneous
  Country: US (occurrence: None)
  Receive Date: 20231009
  Receipt Date: 20231009
  Transmission Date: 20240110
  Serious: No
  Sender: FDA-Public Use
  Company Number: 2023A225566

PATIENT

DRUGS (2)
  1. FARXIGA [Suspect]
     Active Substance: DAPAGLIFLOZIN PROPANEDIOL
     Route: 048
  2. LITHIUM [Suspect]
     Active Substance: LITHIUM

REACTIONS (3)
  - Drug interaction [Unknown]
  - Chronic kidney disease [Unknown]
  - Drug ineffective [Unknown]
